FAERS Safety Report 21518156 (Version 1)
Quarter: 2022Q4

REPORT INFORMATION
  Report Type: Spontaneous
  Country: US (occurrence: None)
  Receive Date: 20221028
  Receipt Date: 20221028
  Transmission Date: 20230113
  Serious: Yes (Hospitalization)
  Sender: FDA-Public Use
  Company Number: US-ROCHE-3206484

PATIENT
  Sex: Male

DRUGS (1)
  1. ALECENSA [Suspect]
     Active Substance: ALECTINIB HYDROCHLORIDE
     Indication: Non-small cell lung cancer
     Route: 065
     Dates: start: 20221020

REACTIONS (5)
  - Off label use [Unknown]
  - Oral discomfort [Unknown]
  - Odynophagia [Unknown]
  - Fall [Unknown]
  - Product use complaint [Unknown]

NARRATIVE: CASE EVENT DATE: 20221020
